FAERS Safety Report 9690831 (Version 3)
Quarter: 2014Q1

REPORT INFORMATION
  Report Type: Report from Study
  Country: US (occurrence: US)
  Receive Date: 20131115
  Receipt Date: 20140203
  Transmission Date: 20141002
  Serious: Yes (Hospitalization, Other)
  Sender: FDA-Public Use
  Company Number: US-VERTEX PHARMACEUTICALS INC-2013-011032

PATIENT
  Age: 22 Year
  Sex: Female

DRUGS (8)
  1. VX-809 FDC [Suspect]
     Indication: CYSTIC FIBROSIS
     Dosage: 400 MG, Q12 HOURS
     Route: 048
     Dates: start: 20130925, end: 20131109
  2. VX-770 FDC [Suspect]
     Indication: CYSTIC FIBROSIS
     Dosage: 250 MG, Q12 HOURS
     Route: 048
     Dates: start: 20130925, end: 20131109
  3. INFLUENZA VACCINE [Concomitant]
     Indication: PROPHYLAXIS
     Dosage: 0.25 MG, SINGLE
     Route: 030
     Dates: start: 20131112, end: 20131112
  4. PULMOZYME [Concomitant]
     Indication: CYSTIC FIBROSIS LUNG
     Dosage: 2.5 MG, QD
     Route: 055
     Dates: start: 2006
  5. CREON 12000 [Concomitant]
     Indication: PANCREATIC INSUFFICIENCY
     Dosage: 6-7 WITH MEALS
     Dates: start: 20131014
  6. VITAMIN D [Concomitant]
     Indication: PANCREATIC INSUFFICIENCY
     Dosage: 2000 QD
  7. MULTIVITAMINS [Concomitant]
     Indication: NUTRITIONAL SUPPLEMENTATION
     Dosage: 1 CAPSULE
  8. ADEKS [Concomitant]
     Indication: PANCREATIC INSUFFICIENCY
     Dosage: 1 CAPLET
     Dates: start: 2006

REACTIONS (2)
  - Nephrolithiasis [Recovered/Resolved]
  - Kidney infection [Recovered/Resolved]
